FAERS Safety Report 23441941 (Version 1)
Quarter: 2024Q1

REPORT INFORMATION
  Report Type: Report from Study
  Country: ES (occurrence: ES)
  Receive Date: 20240125
  Receipt Date: 20240125
  Transmission Date: 20240409
  Serious: Yes (Disabling)
  Sender: FDA-Public Use
  Company Number: ES-TEVA-VS-3145570

PATIENT
  Age: 77 Year

DRUGS (5)
  1. TERIPARATIDE [Suspect]
     Active Substance: TERIPARATIDE
     Indication: Osteoporosis
     Route: 065
     Dates: start: 20230627
  2. LORAZEPAM [Concomitant]
     Active Substance: LORAZEPAM
     Indication: Insomnia
     Dosage: AT NIGHT SINCE A LONG AGO TREATMENT ONGOING.
  3. Lexatin [Concomitant]
     Indication: Muscle spasms
     Dosage: IF NEEDED SINCE A LONG AGO; TREATMENT ONGOING.
  4. ACETAMINOPHEN [Concomitant]
     Active Substance: ACETAMINOPHEN
     Indication: Diabetes mellitus
     Dosage: IF NEEDED SINCE A LONG AGO; TREATMENT ONGOING
  5. Nolotil [Concomitant]
     Indication: Diabetes mellitus
     Dosage: IF NECCESSORY SINCE A LONG AGO; TREATMENT ONGOING.

REACTIONS (6)
  - Dysuria [Not Recovered/Not Resolved]
  - Erythema [Not Recovered/Not Resolved]
  - Urine odour abnormal [Not Recovered/Not Resolved]
  - Pollakiuria [Not Recovered/Not Resolved]
  - Acne [Not Recovered/Not Resolved]
  - Pruritus [Not Recovered/Not Resolved]

NARRATIVE: CASE EVENT DATE: 20230801
